FAERS Safety Report 10876940 (Version 2)
Quarter: 2015Q1

REPORT INFORMATION
  Report Type: Spontaneous
  Country: DE (occurrence: DE)
  Receive Date: 20150302
  Receipt Date: 20150302
  Transmission Date: 20150721
  Serious: Yes (Life-Threatening, Hospitalization)
  Sender: FDA-Public Use
  Company Number: DE-JNJFOC-20150216932

PATIENT
  Age: 89 Year
  Sex: Female
  Weight: 85 kg

DRUGS (1)
  1. CETIRIZINE [Suspect]
     Active Substance: CETIRIZINE HYDROCHLORIDE
     Indication: ECZEMA
     Route: 048

REACTIONS (6)
  - Hypothermia [Recovered/Resolved]
  - Bradycardia [Unknown]
  - Disturbance in attention [Unknown]
  - Inappropriate schedule of drug administration [Unknown]
  - Somnolence [Unknown]
  - Acute kidney injury [Unknown]

NARRATIVE: CASE EVENT DATE: 20150208
